FAERS Safety Report 5620063-5 (Version None)
Quarter: 2008Q1

REPORT INFORMATION
  Report Type: 
  Country: None (occurrence: None)
  Receive Date: 20080208
  Receipt Date: 20080201
  Transmission Date: 20080703
  Serious: Yes (Other)
  Sender: FDA-Public Use
  Company Number: CH-ASTRAZENECA-2008PK00268

PATIENT
  Age: 31742 Day
  Sex: Male
  Weight: 74 kg

DRUGS (8)
  1. CRESTOR [Suspect]
     Indication: HYPERCHOLESTEROLAEMIA
     Route: 048
     Dates: start: 20071125, end: 20080115
  2. CORDARONE [Concomitant]
     Indication: ARRHYTHMIA
     Dates: start: 20060101
  3. LISINOPRIL [Concomitant]
     Indication: HYPERTENSION
     Dates: start: 20020101
  4. MARCUMAR [Concomitant]
     Indication: MYOCARDIAL INFARCTION
     Dates: start: 19900101
  5. HYDROCHLOROTHIAZIDE [Concomitant]
     Indication: HYPERTENSION
     Dates: start: 20020101
  6. PLAVIX [Concomitant]
     Indication: STENT PLACEMENT
     Dates: start: 20040101
  7. EZETROL [Concomitant]
     Indication: HYPERCHOLESTEROLAEMIA
     Dates: start: 20010101
  8. CONDROSULF [Concomitant]
     Indication: OSTEOARTHRITIS
     Dates: start: 20030101

REACTIONS (2)
  - ECZEMA [None]
  - URTICARIA [None]
